FAERS Safety Report 24152457 (Version 2)
Quarter: 2024Q3

REPORT INFORMATION
  Report Type: Report from Study
  Country: US (occurrence: US)
  Receive Date: 20240730
  Receipt Date: 20240903
  Transmission Date: 20241016
  Serious: Yes (Hospitalization)
  Sender: ABBVIE
  Company Number: US-ABBVIE-5854844

PATIENT
  Sex: Female

DRUGS (1)
  1. SKYRIZI [Suspect]
     Active Substance: RISANKIZUMAB-RZAA
     Indication: Crohn^s disease
     Route: 042
     Dates: start: 20240716

REACTIONS (8)
  - Blood potassium decreased [Recovering/Resolving]
  - Infection [Recovering/Resolving]
  - COVID-19 [Recovering/Resolving]
  - Diarrhoea [Unknown]
  - Brain fog [Unknown]
  - Fistula [Unknown]
  - White blood cell count increased [Unknown]
  - Fatigue [Unknown]

NARRATIVE: CASE EVENT DATE: 20240101
